FAERS Safety Report 8029284-8 (Version None)
Quarter: 2012Q1

REPORT INFORMATION
  Report Type: 
  Country: None (occurrence: None)
  Receive Date: 20120106
  Receipt Date: 20120103
  Transmission Date: 20120608
  Serious: Yes (Other)
  Sender: FDA-Public Use
  Company Number: DK-PFIZER INC-2012001729

PATIENT
  Age: 57 Year
  Sex: Female

DRUGS (5)
  1. LYRICA [Suspect]
     Dosage: STRENGTH: 25 MG VARYING DOSAGES
     Dates: start: 20090216, end: 20090101
  2. OXAZEPAM [Concomitant]
  3. LYRICA [Suspect]
     Dosage: 225 MG, 2X/DAY
     Dates: start: 20091118, end: 20091202
  4. LYRICA [Suspect]
     Dosage: 225 + 150 MG, DAILY
     Dates: start: 20091203, end: 20100101
  5. OXAZEPAM [Concomitant]

REACTIONS (22)
  - FALL [None]
  - CHOKING SENSATION [None]
  - MOTOR DYSFUNCTION [None]
  - TOXICITY TO VARIOUS AGENTS [None]
  - BLOOD PRESSURE INCREASED [None]
  - DYSGEUSIA [None]
  - PAIN IN EXTREMITY [None]
  - VISUAL IMPAIRMENT [None]
  - MUSCLE SPASMS [None]
  - MUSCLE TWITCHING [None]
  - MEMORY IMPAIRMENT [None]
  - DIZZINESS [None]
  - HYPOAESTHESIA [None]
  - DRY MOUTH [None]
  - SENSORY DISTURBANCE [None]
  - ANKLE FRACTURE [None]
  - FATIGUE [None]
  - FOAMING AT MOUTH [None]
  - INSOMNIA [None]
  - GAIT DISTURBANCE [None]
  - VOMITING [None]
  - BALANCE DISORDER [None]
